FAERS Safety Report 7456311-9 (Version None)
Quarter: 2011Q2

REPORT INFORMATION
  Report Type: 
  Country: None (occurrence: None)
  Receive Date: 20110503
  Receipt Date: 20110406
  Transmission Date: 20111010
  Serious: Yes (Hospitalization)
  Sender: FDA-Public Use
  Company Number: US-BAYER-201035904NA

PATIENT
  Age: 23 Year
  Sex: Female
  Weight: 54.422 kg

DRUGS (9)
  1. AMOXICILLIN [Concomitant]
  2. ZOFRAN [Concomitant]
  3. MOTRIN [Concomitant]
  4. ADVIL LIQUI-GELS [Concomitant]
  5. VICODIN [Concomitant]
     Indication: PAIN
  6. IBUPROFEN [Concomitant]
  7. YASMIN [Suspect]
     Indication: PRODUCT USED FOR UNKNOWN INDICATION
     Dosage: UNK
     Route: 048
     Dates: start: 20070117, end: 20071127
  8. PERCOCET [Concomitant]
     Indication: PAIN
  9. OCELLA [Suspect]
     Indication: PRODUCT USED FOR UNKNOWN INDICATION
     Dosage: UNK
     Route: 048
     Dates: start: 20081130, end: 20090902

REACTIONS (3)
  - VENOUS THROMBOSIS LIMB [None]
  - TYPE 1 DIABETES MELLITUS [None]
  - DEEP VEIN THROMBOSIS [None]
